FAERS Safety Report 16213155 (Version 2)
Quarter: 2023Q2

REPORT INFORMATION
  Report Type: Spontaneous
  Country: HU (occurrence: HU)
  Receive Date: 20190418
  Receipt Date: 20230519
  Transmission Date: 20230722
  Serious: Yes (Hospitalization, Other)
  Sender: FDA-Public Use
  Company Number: HU-ALEXION-65356

PATIENT
  Age: 17 Year
  Sex: Male
  Weight: 91.4 kg

DRUGS (6)
  1. KANUMA [Suspect]
     Active Substance: SEBELIPASE ALFA
     Dosage: 100 MG, UNK
     Route: 065
     Dates: start: 20190314
  2. KANUMA [Suspect]
     Active Substance: SEBELIPASE ALFA
     Dosage: 1 MG/KG, Q2W
     Route: 051
     Dates: start: 201903
  3. KANUMA [Suspect]
     Active Substance: SEBELIPASE ALFA
     Indication: Lysosomal acid lipase deficiency
     Dosage: 100 MG, UNK
     Route: 065
     Dates: start: 20190301
  4. KANUMA [Suspect]
     Active Substance: SEBELIPASE ALFA
     Dosage: 10 VIALS/WEEK
     Route: 042
  5. ALBUTEROL SULFATE [Concomitant]
     Active Substance: ALBUTEROL SULFATE
     Indication: Product used for unknown indication
     Route: 065
  6. CHLOROPYRAMINE HYDROCHLORIDE [Concomitant]
     Active Substance: CHLOROPYRAMINE HYDROCHLORIDE
     Indication: Antiallergic therapy
     Route: 065

REACTIONS (16)
  - Dehydration [Unknown]
  - Asthenia [Recovered/Resolved]
  - Diarrhoea [Recovered/Resolved]
  - Pyrexia [Recovered/Resolved]
  - Leukopenia [Unknown]
  - Liver function test increased [Unknown]
  - Eosinophilia [Unknown]
  - C-reactive protein increased [Unknown]
  - Procalcitonin abnormal [Unknown]
  - Pallor [Unknown]
  - Hypotension [Recovered/Resolved]
  - Transaminases increased [Unknown]
  - Mucous stools [Unknown]
  - Headache [Recovering/Resolving]
  - Abdominal pain [Recovering/Resolving]
  - Blood pressure fluctuation [Recovered/Resolved]

NARRATIVE: CASE EVENT DATE: 20190304
